FAERS Safety Report 4810957-2 (Version None)
Quarter: 2005Q4

REPORT INFORMATION
  Report Type: 
  Country: None (occurrence: None)
  Receive Date: 20051027
  Receipt Date: 20051006
  Transmission Date: 20060501
  Serious: Yes (Hospitalization)
  Sender: FDA-Public Use
  Company Number: US-KINGPHARMUSA00001-K200501324

PATIENT
  Age: 83 Year
  Sex: Male

DRUGS (7)
  1. ALTACE [Suspect]
     Dosage: 5 MG, QD
     Route: 048
  2. IKOREL [Suspect]
     Dosage: 20 MG, QD
     Route: 048
  3. CARDENSIEL [Suspect]
     Dosage: 2.5 MG, QD
     Route: 048
  4. AMLOR [Suspect]
     Dosage: 5 MG, QD
     Route: 048
  5. KARDEGIC [Concomitant]
     Dosage: 75 MG, QD
     Route: 048
  6. ISOPHANE INSULIN [Concomitant]
     Dosage: 20 H M GE
     Route: 058
  7. PENFILL [Concomitant]

REACTIONS (4)
  - DRUG INTERACTION [None]
  - LOSS OF CONSCIOUSNESS [None]
  - MALAISE [None]
  - ORTHOSTATIC HYPOTENSION [None]
